FAERS Safety Report 16732096 (Version 1)
Quarter: 2019Q3

REPORT INFORMATION
  Report Type: Spontaneous
  Country: CA (occurrence: CA)
  Receive Date: 20190822
  Receipt Date: 20190822
  Transmission Date: 20191005
  Serious: Yes (Other)
  Sender: FDA-Public Use
  Company Number: CA-TEVA-2019-CA-1095858

PATIENT
  Age: 91 Year
  Sex: Female

DRUGS (6)
  1. METHOTREXATE. [Suspect]
     Active Substance: METHOTREXATE
     Indication: RHEUMATOID ARTHRITIS
     Route: 048
  2. PREDNISONE. [Concomitant]
     Active Substance: PREDNISONE
  3. XELJANZ [Concomitant]
     Active Substance: TOFACITINIB CITRATE
     Indication: RHEUMATOID ARTHRITIS
     Dosage: 10 MILLIGRAM DAILY;
     Route: 048
  4. CIMZIA [Concomitant]
     Active Substance: CERTOLIZUMAB PEGOL
  5. PREDNISONE. [Concomitant]
     Active Substance: PREDNISONE
  6. ARAVA [Concomitant]
     Active Substance: LEFLUNOMIDE

REACTIONS (11)
  - Condition aggravated [Recovered/Resolved]
  - Headache [Recovered/Resolved]
  - Iritis [Recovered/Resolved]
  - Compression fracture [Recovered/Resolved]
  - Femoral neck fracture [Recovered/Resolved]
  - Spinal column injury [Recovered/Resolved]
  - Osteonecrosis [Recovered/Resolved]
  - Peripheral sensory neuropathy [Recovered/Resolved]
  - Temporal arteritis [Recovered/Resolved]
  - Infection [Recovered/Resolved]
  - Mouth ulceration [Recovered/Resolved]
